FAERS Safety Report 4489504-3 (Version None)
Quarter: 2004Q4

REPORT INFORMATION
  Report Type: 
  Country: None (occurrence: None)
  Receive Date: 20041101
  Receipt Date: 20041025
  Transmission Date: 20050328
  Serious: Yes (Hospitalization)
  Sender: FDA-Public Use
  Company Number: PHNU2004DE03639

PATIENT
  Age: 52 Year
  Sex: Female

DRUGS (3)
  1. CLOZARIL [Suspect]
     Indication: SCHIZOPHRENIA
     Dosage: 150 MG/DAY
     Route: 048
     Dates: start: 20020813, end: 20020831
  2. CLOZARIL [Suspect]
     Dosage: 200 MG/DAY
     Route: 048
     Dates: start: 20040901, end: 20040905
  3. HALDOL [Suspect]
     Dosage: 5 MG/DAY
     Route: 048
     Dates: start: 20020822, end: 20020902

REACTIONS (3)
  - DRUG INTERACTION [None]
  - PAROTITIS [None]
  - ULTRASOUND SCAN ABNORMAL [None]
